FAERS Safety Report 5060663-7 (Version None)
Quarter: 2006Q3

REPORT INFORMATION
  Report Type: 
  Country: None (occurrence: None)
  Receive Date: 20060719
  Receipt Date: 20060719
  Transmission Date: 20061208
  Serious: Yes (Other)
  Sender: FDA-Public Use
  Company Number: None

PATIENT
  Age: 67 Year
  Sex: Female
  Weight: 56 kg

DRUGS (4)
  1. LOVENOX [Suspect]
     Indication: DEEP VEIN THROMBOSIS
     Dosage: 30 MG QNOON SQ    40MG QNOON SQ
     Route: 058
     Dates: start: 20060620, end: 20060622
  2. LOVENOX [Suspect]
     Indication: PROPHYLAXIS
     Dosage: 30 MG QNOON SQ    40MG QNOON SQ
     Route: 058
     Dates: start: 20060620, end: 20060622
  3. LOVENOX [Suspect]
     Indication: DEEP VEIN THROMBOSIS
     Dosage: 30 MG QNOON SQ    40MG QNOON SQ
     Route: 058
     Dates: start: 20060626, end: 20060706
  4. LOVENOX [Suspect]
     Indication: PROPHYLAXIS
     Dosage: 30 MG QNOON SQ    40MG QNOON SQ
     Route: 058
     Dates: start: 20060626, end: 20060706

REACTIONS (2)
  - HEPARIN-INDUCED THROMBOCYTOPENIA [None]
  - PLATELET COUNT DECREASED [None]
